FAERS Safety Report 7493709-7 (Version None)
Quarter: 2011Q2

REPORT INFORMATION
  Report Type: 
  Country: None (occurrence: None)
  Receive Date: 20110520
  Receipt Date: 20110511
  Transmission Date: 20111010
  Serious: Yes (Hospitalization, Disabling, Other)
  Sender: FDA-Public Use
  Company Number: SG-BAYER-2011-033637

PATIENT
  Age: 51 Year
  Sex: Female

DRUGS (17)
  1. PREDNISOLONE [Concomitant]
     Dosage: 5 MG, OM
     Route: 048
     Dates: start: 20110404
  2. OMEPRAZOLE [Concomitant]
     Dosage: 20 MG, BID
     Route: 048
     Dates: start: 20110428
  3. PREDNISOLONE [Concomitant]
     Dosage: 2.5 MG, OM
     Route: 048
     Dates: start: 20110404
  4. ASPIRIN [Concomitant]
     Indication: UNEVALUABLE EVENT
     Dosage: 100 MG, OM
     Dates: start: 20110428
  5. VINORELBINE [Suspect]
     Indication: NON-SMALL CELL LUNG CANCER
     Dosage: 20 MG, QOD
     Route: 048
     Dates: end: 20110418
  6. CODEINE PHOSPHATE [Concomitant]
     Dosage: 30 MG, TDS
     Route: 048
     Dates: start: 20110404
  7. METOCLOPRAMIDE [Concomitant]
     Indication: NAUSEA
     Dosage: 10 MG, PRN
     Route: 048
     Dates: start: 20110428
  8. METOCLOPRAMIDE [Concomitant]
     Indication: VOMITING
  9. SORAFENIB (RAF KINASE INHIBITOR) [Suspect]
     Dosage: 200 MG, BID
     Route: 048
     Dates: start: 20110428
  10. TRAMADOL HCL [Concomitant]
     Indication: PAIN
     Dosage: 50 MG, PRN
     Route: 048
     Dates: start: 20110428
  11. VINORELBINE [Suspect]
     Dosage: 20 MG, TIW
     Route: 048
     Dates: start: 20110428
  12. ACETAMINOPHEN [Concomitant]
     Indication: PAIN
     Dosage: 1 G, PRN
     Route: 048
     Dates: start: 20110428
  13. SORAFENIB (RAF KINASE INHIBITOR) [Suspect]
     Indication: NON-SMALL CELL LUNG CANCER
     Dosage: 400 MG, BID
     Route: 048
     Dates: end: 20110418
  14. PREDNISOLONE [Concomitant]
     Dosage: 2.5 MG, OM
     Route: 048
     Dates: start: 20110428
  15. POTASSIUM CHLORIDE [Concomitant]
     Dosage: 600 MG, OM
     Route: 048
     Dates: start: 20110428
  16. ACETAMINOPHEN [Concomitant]
     Indication: PYREXIA
  17. CALCIUM CARBONATE W/VITAMIN D NOS [Concomitant]
     Dosage: 2 DF, OM
     Route: 048

REACTIONS (4)
  - CEREBRAL INFARCTION [None]
  - DYSPNOEA [None]
  - DIARRHOEA [None]
  - BLINDNESS [None]
